FAERS Safety Report 12581427 (Version 1)
Quarter: 2016Q3

REPORT INFORMATION
  Report Type: Spontaneous
  Country: US (occurrence: US)
  Receive Date: 20160721
  Receipt Date: 20160721
  Transmission Date: 20161109
  Serious: No
  Sender: FDA-Public Use
  Company Number: US-PRESTIUM-2015RN000074

PATIENT
  Age: 70 Year
  Sex: Female
  Weight: 63.49 kg

DRUGS (2)
  1. APREMILAST [Concomitant]
     Active Substance: APREMILAST
     Dosage: UNK
  2. CLOBETASOL PROPIONATE. [Suspect]
     Active Substance: CLOBETASOL PROPIONATE
     Indication: PSORIASIS
     Dosage: 100 GM, UNK
     Route: 061

REACTIONS (2)
  - Administration site irritation [Recovered/Resolved]
  - Product dosage form issue [Recovered/Resolved]

NARRATIVE: CASE EVENT DATE: 201509
